FAERS Safety Report 4893123-4 (Version None)
Quarter: 2005Q4

REPORT INFORMATION
  Report Type: 
  Country: None (occurrence: None)
  Receive Date: 20051223
  Receipt Date: 20050105
  Transmission Date: 20060501
  Serious: Yes (Hospitalization, Other)
  Sender: FDA-Public Use
  Company Number: PHEH2005US00546

PATIENT
  Sex: Female

DRUGS (4)
  1. CLOZARIL [Suspect]
     Dosage: ORAL
     Route: 048
     Dates: start: 20041123, end: 20041123
  2. PEG-INTRON [Suspect]
     Dosage: 120 MCG, QW, INJECTION NOS
     Dates: start: 20041123, end: 20041123
  3. PEG-INTRON [Suspect]
     Dosage: 120 MCG, QW, INJECTION NOS
     Dates: start: 20041201
  4. REBETOL [Suspect]
     Dates: start: 20041123

REACTIONS (3)
  - HYPOTENSION [None]
  - NEUTROPENIA [None]
  - SOMNOLENCE [None]
